FAERS Safety Report 5474433-9 (Version None)
Quarter: 2007Q4

REPORT INFORMATION
  Report Type: 
  Country: None (occurrence: None)
  Receive Date: 20071002
  Receipt Date: 20070921
  Transmission Date: 20080405
  Serious: Yes (Death, Hospitalization)
  Sender: FDA-Public Use
  Company Number: FR-BRISTOL-MYERS SQUIBB COMPANY-13923875

PATIENT
  Age: 67 Year
  Sex: Female

DRUGS (2)
  1. ENDOXAN [Suspect]
     Indication: CHRONIC LYMPHOCYTIC LEUKAEMIA
     Dosage: CYCLE 1:02 TO 04-JUN-2006,CYCLE 2:30-JUN-2006 TO 02-JUL-2006,CYCLE 3:01 TO 03-AUG-2006.
     Route: 042
     Dates: start: 20060602, end: 20060803
  2. FLUDARA [Suspect]
     Indication: CHRONIC LYMPHOCYTIC LEUKAEMIA
     Dosage: CYCLE 1:02 TO 04-JUN-2006,CYCLE 2:30-JUN-2006 TO 02-JUL-2006,CYCLE 3:01 TO 03-AUG-2006.
     Route: 042
     Dates: start: 20060602, end: 20060803

REACTIONS (3)
  - DEATH [None]
  - FEBRILE BONE MARROW APLASIA [None]
  - LUNG DISORDER [None]
